FAERS Safety Report 11290826 (Version 3)
Quarter: 2015Q3

REPORT INFORMATION
  Report Type: Report from Study
  Country: GB (occurrence: None)
  Receive Date: 20150720
  Receipt Date: 20150810
  Transmission Date: 20151125
  Serious: Yes (Other)
  Sender: FDA-Public Use
  Company Number: 150272-2

PATIENT
  Age: 44 Year
  Sex: Female

DRUGS (2)
  1. TOTEMA (FERROUS GLUCONATE) ? [Concomitant]
  2. EZICLEN [Suspect]
     Active Substance: MAGNESIUM SULFATE\POTASSIUM SULFATE\SODIUM SULFATE
     Indication: COLONOSCOPY
     Dosage: 0.5L 2X PO
     Route: 048
     Dates: start: 20150624, end: 20150625

REACTIONS (5)
  - Rectal tenesmus [None]
  - Faecal incontinence [None]
  - Proctitis [None]
  - Oedema [None]
  - Hyperaemia [None]

NARRATIVE: CASE EVENT DATE: 20150625
